FAERS Safety Report 24827042 (Version 2)
Quarter: 2025Q1

REPORT INFORMATION
  Report Type: Spontaneous
  Country: CZ (occurrence: CZ)
  Receive Date: 20250109
  Receipt Date: 20250130
  Transmission Date: 20250409
  Serious: Yes (Life-Threatening, Hospitalization, Other)
  Sender: BAXTER
  Company Number: CZ-EMA-20241228-AUTODUP-1735341141305

PATIENT
  Age: 59 Year
  Sex: Female

DRUGS (3)
  1. DOXORUBICIN [Suspect]
     Active Substance: DOXORUBICIN
     Indication: Triple negative breast cancer
     Route: 065
  2. CYCLOPHOSPHAMIDE [Suspect]
     Active Substance: CYCLOPHOSPHAMIDE
     Indication: Triple negative breast cancer
     Route: 065
  3. PEMBROLIZUMAB [Suspect]
     Active Substance: PEMBROLIZUMAB
     Indication: Triple negative breast cancer
     Route: 065

REACTIONS (4)
  - Immune-mediated nephritis [Recovered/Resolved]
  - Hypothyroidism [Recovering/Resolving]
  - Respiratory failure [Recovered/Resolved]
  - Pneumocystis jirovecii pneumonia [Recovered/Resolved]
